FAERS Safety Report 13761667 (Version 1)
Quarter: 2017Q3

REPORT INFORMATION
  Report Type: Spontaneous
  Country: GB (occurrence: GB)
  Receive Date: 20170718
  Receipt Date: 20170718
  Transmission Date: 20171127
  Serious: Yes (Other)
  Sender: FDA-Public Use
  Company Number: GB-MYLANLABS-2017M1041044

PATIENT

DRUGS (1)
  1. CAPECITABINE. [Suspect]
     Active Substance: CAPECITABINE
     Indication: PRODUCT USED FOR UNKNOWN INDICATION
     Dosage: RECEIVED 14 CYCLES (14 DAYS OF TREATMENT EACH CYCLE)

REACTIONS (4)
  - Back pain [Unknown]
  - Haemoglobin decreased [Unknown]
  - Blister [Unknown]
  - Product package associated injury [Unknown]
